FAERS Safety Report 7868765-4 (Version None)
Quarter: 2011Q4

REPORT INFORMATION
  Report Type: 
  Country: None (occurrence: None)
  Receive Date: 20111028
  Receipt Date: 20101220
  Transmission Date: 20120403
  Serious: No
  Sender: FDA-Public Use
  Company Number: US-AMGEN-USASP2010009965

PATIENT
  Age: 30 Year
  Sex: Female

DRUGS (3)
  1. PLAQUENIL [Concomitant]
     Dates: start: 20090101
  2. METHOTREXATE [Concomitant]
     Dates: start: 20090601
  3. ENBREL [Suspect]
     Indication: RHEUMATOID ARTHRITIS
     Dosage: 50 MG, QWK
     Dates: start: 20101215

REACTIONS (2)
  - VOMITING [None]
  - NAUSEA [None]
